FAERS Safety Report 14300878 (Version 4)
Quarter: 2018Q1

REPORT INFORMATION
  Report Type: Spontaneous
  Country: RU (occurrence: RU)
  Receive Date: 20171219
  Receipt Date: 20180323
  Transmission Date: 20180509
  Serious: Yes (Life-Threatening)
  Sender: FDA-Public Use
  Company Number: RU-CHIESI USA INC.-RU-2017CHI000245

PATIENT
  Age: 0 Day
  Sex: Male

DRUGS (3)
  1. CUROSURF [Suspect]
     Active Substance: PORACTANT ALFA
     Dosage: 100 MG/KG, UNK
     Route: 007
     Dates: start: 20171206, end: 20171207
  2. CUROSURF [Suspect]
     Active Substance: PORACTANT ALFA
     Dosage: 100 MG/KG, UNK
     Route: 007
     Dates: start: 20171207, end: 20171207
  3. CUROSURF [Suspect]
     Active Substance: PORACTANT ALFA
     Indication: NEONATAL RESPIRATORY DISTRESS SYNDROME
     Dosage: 200 MG/KG, UNK
     Route: 007
     Dates: start: 20171206, end: 20171207

REACTIONS (1)
  - Product quality issue [Recovered/Resolved]

NARRATIVE: CASE EVENT DATE: 20171206
